FAERS Safety Report 9305299 (Version 3)
Quarter: 2013Q3

REPORT INFORMATION
  Report Type: Spontaneous
  Country: FR (occurrence: None)
  Receive Date: 20130520
  Receipt Date: 20130708
  Transmission Date: 20140515
  Serious: Yes (Other)
  Sender: FDA-Public Use
  Company Number: TPA2013A03802

PATIENT
  Age: 66 Year
  Sex: Male

DRUGS (1)
  1. ADENURIC [Suspect]
     Indication: GOUT
     Route: 048
     Dates: start: 201304, end: 20130502

REACTIONS (10)
  - Libido disorder [None]
  - Eye pruritus [None]
  - Visual impairment [None]
  - Skin reaction [None]
  - Cough [None]
  - Dyspepsia [None]
  - Headache [None]
  - Dry mouth [None]
  - Arthralgia [None]
  - Stevens-Johnson syndrome [None]
